FAERS Safety Report 7986136-7 (Version None)
Quarter: 2011Q4

REPORT INFORMATION
  Report Type: 
  Country: None (occurrence: None)
  Receive Date: 20111216
  Receipt Date: 20111208
  Transmission Date: 20120403
  Serious: Yes (Other)
  Sender: FDA-Public Use
  Company Number: US-BAYER-200939787NA

PATIENT
  Age: 80 Year
  Sex: Male
  Weight: 89 kg

DRUGS (12)
  1. TRASYLOL [Suspect]
     Indication: CARDIAC TAMPONADE
     Dosage: UNK
     Dates: start: 20060120
  2. PLATELETS [Concomitant]
     Dosage: 2 U, UNK
     Dates: start: 20060119
  3. FRESH FROZEN PLASMA [Concomitant]
     Dosage: 1 U, UNK
     Dates: start: 20060119
  4. TRASYLOL [Suspect]
     Indication: STERNOTOMY
     Dosage: UNK
     Route: 042
     Dates: start: 20060119
  5. PLAVIX [Concomitant]
     Dosage: 75 MG, QD
     Route: 048
  6. SIMVASTATIN [Concomitant]
     Dosage: 20 MG DAILY
     Route: 048
  7. HYTRIN [Concomitant]
     Dosage: 1 U, QD
     Route: 048
  8. FENTANYL [Concomitant]
     Dosage: UNK
     Dates: start: 20060119, end: 20060120
  9. ACETYLSALICYLIC ACID SRT [Concomitant]
     Dosage: 81 MG, QD
     Route: 048
  10. TRASYLOL [Suspect]
     Indication: CATHETER PLACEMENT
  11. ATENOLOL [Concomitant]
     Dosage: 1 U, QD
     Route: 048
  12. ALTACE [Concomitant]
     Dosage: 1 U, QD
     Route: 048

REACTIONS (14)
  - FEAR [None]
  - RENAL INJURY [None]
  - STRESS [None]
  - DEPRESSION [None]
  - ANHEDONIA [None]
  - RENAL FAILURE [None]
  - RENAL IMPAIRMENT [None]
  - PAIN [None]
  - INCONTINENCE [None]
  - ANXIETY [None]
  - FATIGUE [None]
  - INJURY [None]
  - EMOTIONAL DISTRESS [None]
  - UNEVALUABLE EVENT [None]
